FAERS Safety Report 7989035-X (Version None)
Quarter: 2011Q4

REPORT INFORMATION
  Report Type: 
  Country: None (occurrence: None)
  Receive Date: 20111219
  Receipt Date: 20111216
  Transmission Date: 20120403
  Serious: Yes (Hospitalization)
  Sender: FDA-Public Use
  Company Number: TW-BAYER-2011-120871

PATIENT
  Age: 37 Year
  Sex: Female

DRUGS (1)
  1. INTERFERON BETA-1B [Suspect]
     Indication: MULTIPLE SCLEROSIS
     Route: 058

REACTIONS (4)
  - INJECTION SITE PAIN [None]
  - FASCIITIS [None]
  - INFECTIVE MYOSITIS [None]
  - INJECTION SITE SWELLING [None]
